FAERS Safety Report 7774455-9 (Version None)
Quarter: 2011Q3

REPORT INFORMATION
  Report Type: 
  Country: None (occurrence: None)
  Receive Date: 20110923
  Receipt Date: 20110829
  Transmission Date: 20111222
  Serious: Yes (Death, Life-Threatening, Hospitalization, Disabling)
  Sender: FDA-Public Use
  Company Number: US-ROCHE-688742

PATIENT
  Sex: Male
  Weight: 80 kg

DRUGS (5)
  1. TRASTUZUMAB EMTANSINE [Suspect]
     Dosage: 281.5 MG, UNK
     Route: 042
     Dates: start: 20090319
  2. TRASTUZUMAB [Suspect]
     Dosage: 8 MG/KG, SINGLE
     Route: 042
     Dates: start: 20100111
  3. TRASTUZUMAB [Suspect]
     Indication: BREAST CANCER
     Dosage: UNK
     Route: 065
     Dates: start: 20050101, end: 20060101
  4. ABRAXANE [Suspect]
     Dosage: 260 MG/M2, SINGLE
     Route: 042
     Dates: start: 20100111
  5. TRASTUZUMAB [Suspect]
     Dosage: UNK
     Route: 065
     Dates: start: 20061101, end: 20070601

REACTIONS (1)
  - INTERSTITIAL LUNG DISEASE [None]
